FAERS Safety Report 25721326 (Version 2)
Quarter: 2025Q3

REPORT INFORMATION
  Report Type: Spontaneous
  Country: EU (occurrence: EU)
  Receive Date: 20250825
  Receipt Date: 20250903
  Transmission Date: 20251021
  Serious: Yes (Hospitalization, Other)
  Sender: MYLAN
  Company Number: 2012229859

PATIENT
  Age: 64 Year
  Sex: Male

DRUGS (28)
  1. OXALIPLATIN [Suspect]
     Active Substance: OXALIPLATIN
     Indication: Gastric cancer
  2. OXALIPLATIN [Suspect]
     Active Substance: OXALIPLATIN
     Indication: Skin test
  3. OXALIPLATIN [Suspect]
     Active Substance: OXALIPLATIN
     Indication: Skin test
  4. OXALIPLATIN [Suspect]
     Active Substance: OXALIPLATIN
     Indication: Metastatic gastric cancer
  5. DOCETAXEL [Suspect]
     Active Substance: DOCETAXEL
     Indication: Gastric cancer
  6. DOCETAXEL [Suspect]
     Active Substance: DOCETAXEL
     Indication: Skin test
  7. DOCETAXEL [Suspect]
     Active Substance: DOCETAXEL
     Indication: Skin test
  8. CISPLATIN [Suspect]
     Active Substance: CISPLATIN
     Indication: Skin test
  9. CISPLATIN [Suspect]
     Active Substance: CISPLATIN
     Indication: Skin test
  10. CISPLATIN [Suspect]
     Active Substance: CISPLATIN
     Indication: Gastric cancer
  11. CARBOPLATIN [Suspect]
     Active Substance: CARBOPLATIN
     Indication: Skin test
  12. CARBOPLATIN [Suspect]
     Active Substance: CARBOPLATIN
     Indication: Skin test
  13. CARBOPLATIN [Suspect]
     Active Substance: CARBOPLATIN
     Indication: Gastric cancer
  14. TAXOTERE [Suspect]
     Active Substance: DOCETAXEL
     Indication: Metastatic gastric cancer
  15. FLUOROURACIL [Concomitant]
     Active Substance: FLUOROURACIL
     Indication: Gastric cancer
  16. FLUOROURACIL [Concomitant]
     Active Substance: FLUOROURACIL
     Indication: Skin test
  17. FLUOROURACIL [Concomitant]
     Active Substance: FLUOROURACIL
     Indication: Skin test
  18. FLUOROURACIL [Concomitant]
     Active Substance: FLUOROURACIL
     Indication: Metastatic gastric cancer
  19. LEUCOVORIN CALCIUM [Concomitant]
     Active Substance: LEUCOVORIN CALCIUM
     Indication: Gastric cancer
  20. LEUCOVORIN CALCIUM [Concomitant]
     Active Substance: LEUCOVORIN CALCIUM
     Indication: Skin test
  21. LEUCOVORIN CALCIUM [Concomitant]
     Active Substance: LEUCOVORIN CALCIUM
     Indication: Skin test
  22. LEUCOVORIN CALCIUM [Concomitant]
     Active Substance: LEUCOVORIN CALCIUM
     Indication: Metastatic gastric cancer
  23. ONDANSETRON [Concomitant]
     Active Substance: ONDANSETRON
     Indication: Skin test
  24. ONDANSETRON [Concomitant]
     Active Substance: ONDANSETRON
     Indication: Skin test
  25. ONDANSETRON [Concomitant]
     Active Substance: ONDANSETRON
     Indication: Adjuvant therapy
  26. METHYLPREDNISOLONE SODIUM SUCCINATE [Concomitant]
     Active Substance: METHYLPREDNISOLONE SODIUM SUCCINATE
     Indication: Skin test
  27. METHYLPREDNISOLONE SODIUM SUCCINATE [Concomitant]
     Active Substance: METHYLPREDNISOLONE SODIUM SUCCINATE
     Indication: Skin test
  28. METHYLPREDNISOLONE SODIUM SUCCINATE [Concomitant]
     Active Substance: METHYLPREDNISOLONE SODIUM SUCCINATE
     Indication: Adjuvant therapy

REACTIONS (6)
  - Pruritus [Recovered/Resolved with Sequelae]
  - Rash maculo-papular [Recovered/Resolved with Sequelae]
  - Skin test positive [Unknown]
  - Type IV hypersensitivity reaction [Recovered/Resolved with Sequelae]
  - Rash [Unknown]
  - Off label use [Unknown]
